FAERS Safety Report 9687624 (Version 3)
Quarter: 2013Q4

REPORT INFORMATION
  Report Type: Spontaneous
  Country: US (occurrence: None)
  Receive Date: 20131112
  Receipt Date: 20131209
  Transmission Date: 20140711
  Serious: Yes (Death, Other)
  Sender: FDA-Public Use
  Company Number: ADR-2013-02040

PATIENT
  Age: 57 Year
  Sex: Male

DRUGS (1)
  1. LIORESAL INTRATHECAL (2000 MCG/ML) [Suspect]
     Indication: MUSCLE SPASTICITY
     Dates: start: 20081014, end: 20131021

REACTIONS (1)
  - Death [None]
